FAERS Safety Report 18005698 (Version 5)
Quarter: 2021Q3

REPORT INFORMATION
  Report Type: Report from Study
  Country: FR (occurrence: FR)
  Receive Date: 20200710
  Receipt Date: 20210715
  Transmission Date: 20211014
  Serious: Yes (Other)
  Sender: FDA-Public Use
  Company Number: NVSC2020FR190400

PATIENT
  Age: 13 Year
  Sex: Male

DRUGS (26)
  1. TAZOCILLINE [Concomitant]
     Active Substance: PIPERACILLIN SODIUM\TAZOBACTAM SODIUM
     Indication: ASPERGILLUS INFECTION
     Dosage: UNK
     Route: 065
     Dates: start: 20200322, end: 20200330
  2. KEPPRA [Concomitant]
     Active Substance: LEVETIRACETAM
     Indication: PROPHYLAXIS
     Dosage: UNK
     Route: 065
     Dates: start: 20200219, end: 20200406
  3. HYDROCORTISONE. [Concomitant]
     Active Substance: HYDROCORTISONE
     Indication: BONE PAIN
     Dosage: UNK
     Route: 065
     Dates: start: 20200211, end: 20200311
  4. TISAGENLECLEUCEL. [Suspect]
     Active Substance: TISAGENLECLEUCEL
     Indication: B-CELL LYMPHOMA
     Dosage: 1.4X10E6 CELLS/KG, ONCE/SINGLE
     Route: 042
     Dates: start: 20200211
  5. VORICONAZOLE. [Concomitant]
     Active Substance: VORICONAZOLE
     Indication: ASPERGILLUS INFECTION
     Dosage: UNK
     Route: 065
     Dates: start: 20200316, end: 20200317
  6. NUBAIN [Concomitant]
     Active Substance: NALBUPHINE HYDROCHLORIDE
     Indication: DYSAESTHESIA
  7. PANTOPRAZOLE [Concomitant]
     Active Substance: PANTOPRAZOLE
     Indication: VOMITING
     Dosage: UNK
     Route: 065
     Dates: start: 20200302, end: 20200313
  8. ACUPAN [Concomitant]
     Active Substance: NEFOPAM HYDROCHLORIDE
     Indication: BONE PAIN
     Dosage: UNK
     Route: 065
     Dates: start: 20200211, end: 20200406
  9. TRIFLUCAN [Concomitant]
     Active Substance: FLUCONAZOLE
     Indication: ASPERGILLUS INFECTION
     Dosage: UNK
     Route: 065
     Dates: start: 20200314, end: 20200316
  10. TOCILIZUMAB. [Suspect]
     Active Substance: TOCILIZUMAB
     Indication: B-CELL LYMPHOMA
     Dosage: 280 MG/KG
     Route: 042
     Dates: start: 20200219
  11. PROSTIGMINE [Concomitant]
     Indication: URINARY RETENTION
     Dosage: UNK
     Route: 065
     Dates: start: 20200313, end: 20200318
  12. NUBAIN [Concomitant]
     Active Substance: NALBUPHINE HYDROCHLORIDE
     Indication: NEURALGIA
     Dosage: UNK
     Route: 065
     Dates: start: 20200324, end: 20200326
  13. NEURONTIN [Concomitant]
     Active Substance: GABAPENTIN
     Indication: DYSAESTHESIA
     Dosage: UNK
     Route: 065
     Dates: start: 20200309, end: 20200330
  14. POLARAMINE [Concomitant]
     Active Substance: DEXCHLORPHENIRAMINE MALEATE
     Indication: PROPHYLAXIS
     Dosage: UNK
     Route: 065
     Dates: start: 20200119, end: 20200330
  15. RIVOTRIL [Concomitant]
     Active Substance: CLONAZEPAM
     Indication: BONE PAIN
     Dosage: UNK
     Route: 065
     Dates: start: 20200203, end: 20200330
  16. MEROPENEM. [Concomitant]
     Active Substance: MEROPENEM
     Indication: CANDIDA INFECTION
     Dosage: UNK
     Route: 065
     Dates: start: 20200213, end: 20200306
  17. VANCOMYCINE [Concomitant]
     Active Substance: VANCOMYCIN
     Indication: ASPERGILLUS INFECTION
     Dosage: UNK
     Route: 065
     Dates: start: 20200315, end: 20200320
  18. G?CSF [Concomitant]
     Active Substance: GRANULOCYTE COLONY-STIMULATING FACTOR NOS
     Indication: WHITE BLOOD CELL COUNT DECREASED
     Dosage: UNK
     Route: 065
     Dates: start: 20200217, end: 20200328
  19. G?CSF [Concomitant]
     Active Substance: GRANULOCYTE COLONY-STIMULATING FACTOR NOS
     Indication: NEUTROPHIL COUNT DECREASED
  20. ACUPAN [Concomitant]
     Active Substance: NEFOPAM HYDROCHLORIDE
     Indication: ABDOMINAL PAIN
  21. VANCOMYCINE [Concomitant]
     Active Substance: VANCOMYCIN
     Dosage: UNK
     Route: 065
     Dates: start: 20200320, end: 20200330
  22. LYRICA [Concomitant]
     Active Substance: PREGABALIN
     Indication: DYSAESTHESIA
     Dosage: UNK
     Route: 065
     Dates: start: 20200309, end: 20200330
  23. MORPHINE [Concomitant]
     Active Substance: MORPHINE
     Indication: NEURALGIA
     Dosage: UNK
     Route: 065
     Dates: start: 20200227, end: 20200406
  24. RIVOTRIL [Concomitant]
     Active Substance: CLONAZEPAM
     Indication: NEURALGIA
  25. VORICONAZOLE. [Concomitant]
     Active Substance: VORICONAZOLE
     Dosage: UNK
     Route: 065
     Dates: start: 20200318, end: 20200320
  26. BACTRIM [Concomitant]
     Active Substance: SULFAMETHOXAZOLE\TRIMETHOPRIM
     Indication: INFECTION PROPHYLAXIS
     Dosage: UNK
     Route: 065
     Dates: start: 20200220, end: 20200308

REACTIONS (1)
  - Peripheral sensorimotor neuropathy [Not Recovered/Not Resolved]

NARRATIVE: CASE EVENT DATE: 20200327
